FAERS Safety Report 11223222 (Version 3)
Quarter: 2017Q3

REPORT INFORMATION
  Report Type: Report from Study
  Country: IT (occurrence: IT)
  Receive Date: 20150626
  Receipt Date: 20170705
  Transmission Date: 20171127
  Serious: Yes (Hospitalization, Other)
  Sender: FDA-Public Use
  Company Number: IT-ASTRAZENECA-2015SE60918

PATIENT
  Age: 24605 Day
  Sex: Male

DRUGS (11)
  1. TICAGRELOR. [Suspect]
     Active Substance: TICAGRELOR
     Indication: THROMBOSIS PROPHYLAXIS
     Route: 048
     Dates: start: 20131128, end: 201508
  2. ACETYLSALICYLIC ACID [Suspect]
     Active Substance: ASPIRIN
     Indication: CORONARY ARTERY DISEASE
     Dosage: NON-AZ PRODUCT 100 MG DAILY
     Route: 048
     Dates: end: 20131228
  3. SIMVASTATIN. [Concomitant]
     Active Substance: SIMVASTATIN
     Indication: DYSLIPIDAEMIA
     Dates: start: 20131127
  4. ENALAPRIL [Concomitant]
     Active Substance: ENALAPRIL
     Indication: HYPERTENSION
     Dosage: 5.0MG UNKNOWN
  5. METFORMIN [Concomitant]
     Active Substance: METFORMIN HYDROCHLORIDE
  6. ACETYLSALICYLIC ACID [Suspect]
     Active Substance: ASPIRIN
     Indication: CORONARY ARTERY DISEASE
     Dosage: NON-AZ PRODUCT 100 MG DAILY
     Route: 048
     Dates: start: 201508
  7. ACETYLSALICYLIC ACID [Suspect]
     Active Substance: ASPIRIN
     Indication: THROMBOSIS PROPHYLAXIS
     Dosage: NON-AZ PRODUCT 100 MG DAILY
     Route: 048
     Dates: end: 20131228
  8. AMLODIPINE [Concomitant]
     Active Substance: AMLODIPINE BESYLATE
     Indication: HYPERTENSION
  9. METOPROLOL. [Concomitant]
     Active Substance: METOPROLOL
     Indication: CORONARY ARTERY DISEASE
     Dates: start: 20131127
  10. ACETYLSALICYLIC ACID [Suspect]
     Active Substance: ASPIRIN
     Indication: THROMBOSIS PROPHYLAXIS
     Dosage: NON-AZ PRODUCT 100 MG DAILY
     Route: 048
     Dates: start: 201508
  11. TICAGRELOR. [Suspect]
     Active Substance: TICAGRELOR
     Indication: CORONARY ARTERY DISEASE
     Route: 048
     Dates: start: 20131128, end: 201508

REACTIONS (3)
  - Myelodysplastic syndrome [Recovered/Resolved with Sequelae]
  - Antiphospholipid syndrome [Recovered/Resolved with Sequelae]
  - Retinal vascular thrombosis [Recovered/Resolved with Sequelae]

NARRATIVE: CASE EVENT DATE: 20150514
